FAERS Safety Report 15606168 (Version 1)
Quarter: 2018Q4

REPORT INFORMATION
  Report Type: Spontaneous
  Country: DE (occurrence: DE)
  Receive Date: 20181112
  Receipt Date: 20181112
  Transmission Date: 20190205
  Serious: Yes (Hospitalization)
  Sender: FDA-Public Use
  Company Number: DE-ACCORD-091837

PATIENT
  Age: 58 Year
  Sex: Male

DRUGS (5)
  1. FOLSAEURE [Concomitant]
     Active Substance: FOLIC ACID
     Dosage: 1X/W
  2. METHOTREXATE. [Suspect]
     Active Substance: METHOTREXATE
     Indication: PRODUCT USED FOR UNKNOWN INDICATION
  3. TIMONIL [Suspect]
     Active Substance: CARBAMAZEPINE
     Indication: PRODUCT USED FOR UNKNOWN INDICATION
     Dosage: 300 MG, 1-0-1-0
  4. DECORTIN [Concomitant]
     Active Substance: PREDNISONE
     Dosage: 7.5 MG, 1-0-0-0
  5. LEVOTHYROXINE. [Concomitant]
     Active Substance: LEVOTHYROXINE
     Dosage: 100 MICRO GRAM, 1.5-0-0-0

REACTIONS (3)
  - Dizziness [Unknown]
  - Nausea [Unknown]
  - Syncope [Unknown]
